FAERS Safety Report 5095962-6 (Version None)
Quarter: 2006Q3

REPORT INFORMATION
  Report Type: 
  Country: None (occurrence: None)
  Receive Date: 20060830
  Receipt Date: 20060818
  Transmission Date: 20061208
  Serious: Yes (Other)
  Sender: FDA-Public Use
  Company Number: 2006100939

PATIENT
  Sex: Female

DRUGS (11)
  1. GEODON [Suspect]
     Indication: DRUG USE FOR UNKNOWN INDICATION
     Dosage: 120 MG (60 MG, 2 IN 1 D); ORAL
     Route: 048
     Dates: start: 20051115
  2. REVATIO [Suspect]
     Indication: PULMONARY HYPERTENSION
     Dosage: 60 MG (20 MG, 3 IN 1 D); ORAL
     Route: 048
  3. POTASSIUM CHLORIDE [Concomitant]
  4. PREDNISONE TAB [Concomitant]
  5. ISOSORBIDE MONONITRATE [Concomitant]
  6. LEVOTHYROXINE SODIUM [Concomitant]
  7. FUROSEMIDE [Concomitant]
  8. OXYCODONE AND ACETAMINOPHEN [Concomitant]
  9. ADDERALL 10 [Concomitant]
  10. TESSALON [Concomitant]
  11. LORAZEPAM [Concomitant]

REACTIONS (2)
  - BLISTER [None]
  - PRURITUS [None]
